FAERS Safety Report 23199294 (Version 1)
Quarter: 2023Q4

REPORT INFORMATION
  Report Type: Spontaneous
  Country: US (occurrence: US)
  Receive Date: 20231117
  Receipt Date: 20231117
  Transmission Date: 20240109
  Serious: No
  Sender: FDA-Public Use
  Company Number: US-Stemline Therapeutics, Inc.-2023ST003680

PATIENT
  Sex: Female

DRUGS (1)
  1. ORSERDU [Suspect]
     Active Substance: ELACESTRANT
     Indication: Product use in unapproved indication
     Dosage: 345 MG, 1 TABLET ONCE DAILY BY MOUTH.
     Route: 048

REACTIONS (2)
  - Nausea [Unknown]
  - Vomiting [Unknown]
